FAERS Safety Report 12705974 (Version 1)
Quarter: 2016Q3

REPORT INFORMATION
  Report Type: Spontaneous
  Country: US (occurrence: US)
  Receive Date: 20160901
  Receipt Date: 20160901
  Transmission Date: 20161109
  Serious: No
  Sender: FDA-Public Use
  Company Number: US-TEVA-683777ACC

PATIENT
  Age: 38 Year
  Sex: Female
  Weight: 87.62 kg

DRUGS (1)
  1. PARAGARD T 380A [Suspect]
     Active Substance: COPPER
     Indication: CONTRACEPTION
     Dates: start: 20160713, end: 20160714

REACTIONS (2)
  - Pain [Unknown]
  - Uterine pain [Recovered/Resolved]

NARRATIVE: CASE EVENT DATE: 20160714
